FAERS Safety Report 24646290 (Version 2)
Quarter: 2025Q1

REPORT INFORMATION
  Report Type: Spontaneous
  Country: JP (occurrence: JP)
  Receive Date: 20241121
  Receipt Date: 20250102
  Transmission Date: 20250408
  Serious: Yes (Other)
  Sender: REGENERON
  Company Number: JP-BAYER-2024A165156

PATIENT
  Age: 69 Year
  Sex: Female

DRUGS (4)
  1. EYLEA HD [Suspect]
     Active Substance: AFLIBERCEPT
     Indication: Diabetic retinal oedema
     Route: 031
     Dates: start: 20240730, end: 20240730
  2. EYLEA HD [Suspect]
     Active Substance: AFLIBERCEPT
     Route: 031
     Dates: start: 20240829, end: 20240829
  3. EYLEA HD [Suspect]
     Active Substance: AFLIBERCEPT
     Route: 031
     Dates: start: 20241114, end: 20241114
  4. UNSPECIFIED INGREDIENT [Concomitant]
     Active Substance: UNSPECIFIED INGREDIENT
     Indication: Upper respiratory tract inflammation
     Route: 048

REACTIONS (6)
  - Keratic precipitates [Recovered/Resolved]
  - Visual acuity reduced [Not Recovered/Not Resolved]
  - Vitreous opacities [Recovered/Resolved]
  - Anterior chamber cell [Recovered/Resolved]
  - Iritis [Recovered/Resolved]
  - Vision blurred [Recovered/Resolved]

NARRATIVE: CASE EVENT DATE: 20241116
